FAERS Safety Report 5567028-X (Version None)
Quarter: 2007Q4

REPORT INFORMATION
  Report Type: 
  Country: None (occurrence: None)
  Receive Date: 20071218
  Receipt Date: 20071218
  Transmission Date: 20080405
  Serious: No
  Sender: FDA-Public Use
  Company Number: None

PATIENT
  Age: 28 Year
  Sex: Male
  Weight: 80.2867 kg

DRUGS (5)
  1. ARIPIPRAZOLE [Suspect]
     Dosage: 15MG PO
     Route: 048
  2. ADDERALL 10 [Concomitant]
  3. BUPROPION HCL [Concomitant]
  4. LORAZEPAM [Concomitant]
  5. DIPHENHYDRAMINE HCL [Concomitant]

REACTIONS (1)
  - BLOOD CREATINE PHOSPHOKINASE INCREASED [None]
